FAERS Safety Report 7010484 (Version 2)
Quarter: 2014Q1

REPORT INFORMATION
  Report Type: Spontaneous
  Country: US (occurrence: None)
  Receive Date: 20090526
  Receipt Date: 20140225
  Transmission Date: 20141002
  Serious: No
  Sender: FDA-Public Use
  Company Number: 2009S1004011

PATIENT
  Age: 65 Year
  Sex: Male

DRUGS (11)
  1. EZ PEEP (EZ PREP) (ORAL SOLUTION) [Suspect]
     Indication: PRODUCT USED FOR UNKNOWN INDICATION
     Dosage: PO
     Route: 048
  2. MICARDIS (TEIMISARTAN) [Concomitant]
  3. TYLENOL (PARACETAMOL) [Concomitant]
  4. IBUPROFEN (IBUPROFEN) [Concomitant]
  5. OMEGA-3 (DOCOSAHEXAENOIC ACID, EICOSAPENTAENOIC ACID) [Concomitant]
  6. LIPITOR (ATORVASTATIN CALCIUM) [Concomitant]
  7. CLARITIN (LORATADINE) [Concomitant]
  8. GUAIFENEX (GUAIFENSESIN) [Concomitant]
  9. ASPIRIN (ACETYLSALICYLIC ACID) [Concomitant]
  10. ATENOLOL (ATENOLOL) [Concomitant]
  11. NORVASC (AMLODIPINE BESILATE) [Suspect]

REACTIONS (5)
  - Renal artery stenosis [None]
  - Aortic aneurysm [None]
  - Renal failure chronic [None]
  - Arteriosclerosis [None]
  - Fat embolism [None]
